FAERS Safety Report 8329540-X (Version None)
Quarter: 2012Q2

REPORT INFORMATION
  Report Type: 
  Country: None (occurrence: None)
  Receive Date: 20120502
  Receipt Date: 20120427
  Transmission Date: 20120825
  Serious: No
  Sender: FDA-Public Use
  Company Number: US-PFIZER INC-2012105307

PATIENT
  Sex: Female
  Weight: 43.084 kg

DRUGS (10)
  1. PREMARIN [Suspect]
     Indication: MENOPAUSAL SYMPTOMS
     Dosage: 0.5 MG, 1X/DAY
     Route: 048
     Dates: start: 19970101
  2. PREMARIN [Suspect]
     Indication: PH URINE DECREASED
  3. PREMPRO [Suspect]
     Indication: OSTEOPOROSIS
  4. PREMARIN [Suspect]
     Indication: ARTHRALGIA
  5. PREMPRO [Suspect]
     Indication: MENOPAUSAL SYMPTOMS
     Dosage: 0.625MG/2.5MG, 1X/DAY
     Route: 048
     Dates: start: 20010101
  6. PREMPRO [Suspect]
     Indication: BLOOD DISORDER
  7. PREMPRO [Suspect]
     Indication: CARDIAC DISORDER
  8. CLIMARA [Concomitant]
     Indication: MENOPAUSAL SYMPTOMS
     Dosage: UNK
     Route: 062
  9. PREMARIN [Suspect]
     Indication: NIGHT SWEATS
  10. PREMARIN [Suspect]
     Indication: BONE PAIN

REACTIONS (2)
  - BLOOD OESTROGEN DECREASED [None]
  - OESTROGEN DEFICIENCY [None]
